FAERS Safety Report 13951650 (Version 2)
Quarter: 2017Q4

REPORT INFORMATION
  Report Type: Spontaneous
  Country: US (occurrence: US)
  Receive Date: 20170908
  Receipt Date: 20171213
  Transmission Date: 20180320
  Serious: Yes (Hospitalization, Other)
  Sender: FDA-Public Use
  Company Number: US-DSJP-DSU-2017-136092

PATIENT

DRUGS (1)
  1. BENICAR [Suspect]
     Active Substance: OLMESARTAN MEDOXOMIL
     Dosage: 20 MG, QD
     Dates: start: 20100711, end: 20170515

REACTIONS (3)
  - Diverticulitis [Unknown]
  - Diverticulum intestinal [Unknown]
  - Weight decreased [Unknown]

NARRATIVE: CASE EVENT DATE: 20100226
